FAERS Safety Report 8476314 (Version 3)
Quarter: 2012Q4

REPORT INFORMATION
  Report Type: Report from Study
  Country: DE (occurrence: DE)
  Receive Date: 20120326
  Receipt Date: 20121023
  Transmission Date: 20130627
  Serious: Yes (Hospitalization)
  Sender: FDA-Public Use
  Company Number: DE-ROCHE-1003206

PATIENT
  Age: 53 Year
  Sex: Female
  Weight: 65.8 kg

DRUGS (4)
  1. VEMURAFENIB [Suspect]
     Indication: METASTATIC MALIGNANT MELANOMA
     Dosage: last dose prior to sae 20/sep/2011
     Route: 048
     Dates: start: 20110906, end: 20110920
  2. VEMURAFENIB [Suspect]
     Route: 048
     Dates: start: 20110924
  3. VEMURAFENIB [Suspect]
     Route: 048
     Dates: start: 20110928
  4. MIRTAZAPIN [Concomitant]
     Route: 065
     Dates: start: 201103

REACTIONS (1)
  - Pyrexia [Recovered/Resolved]
